FAERS Safety Report 9462160 (Version 3)
Quarter: 2013Q4

REPORT INFORMATION
  Report Type: Report from Study
  Country: US (occurrence: US)
  Receive Date: 20130816
  Receipt Date: 20131101
  Transmission Date: 20140711
  Serious: Yes (Other)
  Sender: FDA-Public Use
  Company Number: PHEH2013US011696

PATIENT
  Age: 35 Year
  Sex: Female
  Weight: 87.75 kg

DRUGS (5)
  1. GILENYA [Suspect]
     Indication: MULTIPLE SCLEROSIS
     Dosage: 0.5 MG, QD
     Route: 048
     Dates: start: 20130514
  2. GABAPENTIN [Suspect]
     Dosage: 200 MG, BID
     Route: 048
     Dates: end: 201310
  3. SOLUMEDROL [Suspect]
  4. THYROID [Concomitant]
     Indication: THYROID DISORDER
     Route: 048
  5. LISINOPRIL [Concomitant]
     Indication: HYPERTENSION
     Dosage: 10 MG, QD
     Route: 048

REACTIONS (27)
  - Central nervous system lesion [Recovering/Resolving]
  - Temperature intolerance [Recovered/Resolved]
  - Stomatitis [Recovering/Resolving]
  - Tongue blistering [Recovering/Resolving]
  - Fatigue [Recovering/Resolving]
  - Dyspepsia [Recovering/Resolving]
  - Neuralgia [Recovering/Resolving]
  - Malaise [Recovered/Resolved]
  - Chest discomfort [Recovering/Resolving]
  - Pain [Recovering/Resolving]
  - Frustration [Recovering/Resolving]
  - Anxiety [Recovering/Resolving]
  - Oesophagitis [Recovering/Resolving]
  - Oesophageal pain [Not Recovered/Not Resolved]
  - Abdominal discomfort [Recovering/Resolving]
  - Feeling abnormal [Unknown]
  - Hypoaesthesia [Not Recovered/Not Resolved]
  - Peripheral coldness [Not Recovered/Not Resolved]
  - Visual impairment [Recovered/Resolved]
  - Sunburn [Recovered/Resolved]
  - Back pain [Recovering/Resolving]
  - Oral herpes [Recovering/Resolving]
  - Dizziness [Recovering/Resolving]
  - Asthenia [Recovering/Resolving]
  - Dyspnoea [Recovering/Resolving]
  - Infusion site infection [Recovering/Resolving]
  - Paraesthesia [Not Recovered/Not Resolved]
